FAERS Safety Report 4645832-X (Version None)
Quarter: 2005Q2

REPORT INFORMATION
  Report Type: 
  Country: None (occurrence: None)
  Receive Date: 20050425
  Receipt Date: 20050412
  Transmission Date: 20051028
  Serious: Yes (Hospitalization)
  Sender: FDA-Public Use
  Company Number: RS005117-USA

PATIENT
  Age: 67 Year
  Sex: Female

DRUGS (1)
  1. ACIPHEX [Suspect]
     Dosage: ORAL
     Route: 048
     Dates: start: 20041201, end: 20050101

REACTIONS (4)
  - ANTINUCLEAR ANTIBODY NEGATIVE [None]
  - ANTINUCLEAR ANTIBODY POSITIVE [None]
  - FALSE NEGATIVE LABORATORY RESULT [None]
  - NEPHRITIS INTERSTITIAL [None]
